FAERS Safety Report 7601231-X (Version None)
Quarter: 2011Q3

REPORT INFORMATION
  Report Type: 
  Country: None (occurrence: None)
  Receive Date: 20110711
  Receipt Date: 20110630
  Transmission Date: 20111222
  Serious: Yes (Disabling, Other)
  Sender: FDA-Public Use
  Company Number: US-ASTRAZENECA-2011SE39452

PATIENT
  Age: 43 Year
  Sex: Female
  Weight: 65.8 kg

DRUGS (23)
  1. EFFEXOR [Suspect]
     Route: 048
     Dates: start: 19790101
  2. PROTONIX [Suspect]
     Indication: GASTROOESOPHAGEAL REFLUX DISEASE
     Route: 048
  3. COMBIVENT [Concomitant]
     Indication: CHRONIC OBSTRUCTIVE PULMONARY DISEASE
  4. EFFEXOR [Suspect]
     Route: 048
     Dates: start: 19790101
  5. LYRICA [Suspect]
     Indication: PAIN
     Route: 048
  6. AMBIEN [Concomitant]
     Indication: INSOMNIA
     Route: 048
  7. KLONOPIN [Concomitant]
  8. BONIVA [Concomitant]
     Indication: OSTEOPOROSIS
  9. EFFEXOR [Suspect]
     Indication: MAJOR DEPRESSION
     Route: 048
     Dates: start: 19790101
  10. EFFEXOR [Suspect]
     Route: 048
     Dates: start: 19790101
  11. PREVACID [Suspect]
     Indication: DYSPEPSIA
  12. PRIMIDONE [Concomitant]
  13. EFFEXOR [Suspect]
     Route: 048
     Dates: start: 19790101
  14. PRILOSEC [Suspect]
     Route: 048
  15. EFFEXOR [Suspect]
     Indication: ANXIETY DISORDER
     Route: 048
     Dates: start: 19790101
  16. TRAZODONE HCL [Concomitant]
  17. EFFEXOR [Suspect]
     Indication: DEPRESSION
     Route: 048
     Dates: start: 19790101
  18. EFFEXOR [Suspect]
     Indication: POST-TRAUMATIC STRESS DISORDER
     Route: 048
     Dates: start: 19790101
  19. EFFEXOR [Suspect]
     Indication: ANTISOCIAL PERSONALITY DISORDER
     Route: 048
     Dates: start: 19790101
  20. EFFEXOR [Suspect]
     Route: 048
     Dates: start: 19790101
  21. RANITIDINE [Suspect]
     Indication: DYSPEPSIA
  22. ALLEGRA [Concomitant]
     Indication: SEASONAL ALLERGY
  23. SPIRIVA [Concomitant]
     Indication: CHRONIC OBSTRUCTIVE PULMONARY DISEASE

REACTIONS (5)
  - DRUG INEFFECTIVE [None]
  - PARKINSON'S DISEASE [None]
  - DIABETES MELLITUS [None]
  - GAIT DISTURBANCE [None]
  - DYSPEPSIA [None]
